FAERS Safety Report 25874287 (Version 2)
Quarter: 2025Q4

REPORT INFORMATION
  Report Type: Report from Study
  Country: CO (occurrence: CO)
  Receive Date: 20251002
  Receipt Date: 20251008
  Transmission Date: 20260118
  Serious: Yes (Other)
  Sender: TAKEDA
  Company Number: CO-TAKEDA-2025TUS084809

PATIENT
  Age: 54 Year
  Sex: Female
  Weight: 45 kg

DRUGS (2)
  1. PONATINIB [Suspect]
     Active Substance: PONATINIB
     Indication: Chronic myeloid leukaemia
     Dosage: 15 MILLIGRAM, QD
     Dates: start: 20250520, end: 20250925
  2. ACETAMINOPHEN\HYDROCODONE [Concomitant]
     Active Substance: ACETAMINOPHEN\HYDROCODONE
     Indication: Analgesic therapy
     Dosage: UNK UNK, Q8HR
     Dates: start: 20250825

REACTIONS (1)
  - Haematotoxicity [Recovering/Resolving]

NARRATIVE: CASE EVENT DATE: 20250925
